FAERS Safety Report 6736305-9 (Version None)
Quarter: 2010Q2

REPORT INFORMATION
  Report Type: 
  Country: None (occurrence: None)
  Receive Date: 20100521
  Receipt Date: 20100514
  Transmission Date: 20101027
  Serious: Yes (Other)
  Sender: FDA-Public Use
  Company Number: GXKR2010GB05449

PATIENT
  Age: 32 Year
  Sex: Female

DRUGS (7)
  1. SALBUTAMOL (NGX) [Suspect]
     Indication: WHEEZING
     Route: 065
  2. DIGOXIN [Concomitant]
     Indication: TACHYCARDIA
     Route: 065
  3. OXYGEN [Concomitant]
  4. ACETYLSALICYLIC ACID [Concomitant]
  5. ENOXAPARIN SODIUM [Concomitant]
  6. FRUSEMIDE [Concomitant]
     Route: 042
  7. METOPROLOL TARTRATE [Concomitant]
     Dosage: 12.5 MG, BID

REACTIONS (10)
  - DRUG EXPOSURE DURING PREGNANCY [None]
  - GENERAL PHYSICAL HEALTH DETERIORATION [None]
  - HELLP SYNDROME [None]
  - INTRA-UTERINE DEATH [None]
  - LEFT ATRIAL DILATATION [None]
  - MITRAL VALVE INCOMPETENCE [None]
  - MITRAL VALVE STENOSIS [None]
  - PRE-ECLAMPSIA [None]
  - PULMONARY HYPERTENSION [None]
  - PULMONARY OEDEMA [None]
